FAERS Safety Report 9838240 (Version 3)
Quarter: 2014Q4

REPORT INFORMATION
  Report Type: Spontaneous
  Country: US (occurrence: None)
  Receive Date: 20131205
  Receipt Date: 20141205
  Transmission Date: 20150529
  Serious: Yes (Other)
  Sender: FDA-Public Use
  Company Number: 163-POMAL-13100475

PATIENT
  Age: 63 Year
  Sex: Female
  Weight: 108.86 kg

DRUGS (26)
  1. VITAMIN E [Concomitant]
     Active Substance: .ALPHA.-TOCOPHEROL
  2. PRAVASTATIN SODIUM. [Concomitant]
     Active Substance: PRAVASTATIN SODIUM
  3. OXYCODONE [Concomitant]
     Active Substance: OXYCODONE
  4. ASPIRIN. [Concomitant]
     Active Substance: ASPIRIN
  5. CALCIUM (CALCIUM) [Concomitant]
     Active Substance: CALCIUM
  6. COMBIVENT RESPIMAT (COMBIVENT) [Concomitant]
  7. PRAVASTATIN [Concomitant]
     Active Substance: PRAVASTATIN\PRAVASTATIN SODIUM
  8. HYDRALAZINE [Concomitant]
     Active Substance: HYDRALAZINE HYDROCHLORIDE
  9. ISOSORBIDE MONITRATE [Concomitant]
  10. DEXAMETHASONE. [Concomitant]
     Active Substance: DEXAMETHASONE
  11. TORSEMIDE. [Concomitant]
     Active Substance: TORSEMIDE
  12. SPIRONOLACTONE. [Concomitant]
     Active Substance: SPIRONOLACTONE
  13. CYCLOBENZAPRINE HCL (CYCLOBENZAPRINE HYDROCHLORIDE) [Concomitant]
  14. IMDUR [Concomitant]
     Active Substance: ISOSORBIDE MONONITRATE
  15. ALBUTEROL. [Concomitant]
     Active Substance: ALBUTEROL
  16. ACETYL L-CARNITINE (ACETYLCARNITINE) [Concomitant]
  17. CLARITHROMYCIN. [Concomitant]
     Active Substance: CLARITHROMYCIN
  18. METOPROLOL SUCCINATE. [Concomitant]
     Active Substance: METOPROLOL SUCCINATE
  19. KLOR-CON [Concomitant]
     Active Substance: POTASSIUM CHLORIDE
  20. HYDRALAZINE HCL (HYDRALAZINE HYDROCHLORIDE) [Concomitant]
  21. TOPROL XL [Concomitant]
     Active Substance: METOPROLOL SUCCINATE
  22. GABAPENTIN. [Concomitant]
     Active Substance: GABAPENTIN
  23. POMALYST [Suspect]
     Active Substance: POMALIDOMIDE
     Indication: PLASMA CELL MYELOMA
     Dosage: 1 MG, 21 IN 21 D, PO
     Route: 048
     Dates: start: 20130906
  24. OMEPRAZOLE. [Concomitant]
     Active Substance: OMEPRAZOLE
  25. WARFARIN [Concomitant]
     Active Substance: WARFARIN
  26. ACYCLOVIR. [Concomitant]
     Active Substance: ACYCLOVIR

REACTIONS (7)
  - Muscle spasms [None]
  - Back pain [None]
  - Balance disorder [None]
  - Dizziness [None]
  - Burning sensation [None]
  - Increased tendency to bruise [None]
  - Catheter site infection [None]

NARRATIVE: CASE EVENT DATE: 2013
